FAERS Safety Report 8151462-8 (Version None)
Quarter: 2012Q1

REPORT INFORMATION
  Report Type: 
  Country: None (occurrence: None)
  Receive Date: 20120220
  Receipt Date: 20120210
  Transmission Date: 20120608
  Serious: Yes (Other)
  Sender: FDA-Public Use
  Company Number: CA-ROCHE-1039486

PATIENT
  Sex: Male
  Weight: 85.352 kg

DRUGS (4)
  1. DECADRON [Concomitant]
  2. AVASTIN [Suspect]
     Indication: GLIOBLASTOMA
     Route: 042
     Dates: start: 20111230
  3. ZANTAC [Concomitant]
  4. LORAZEPAM [Concomitant]

REACTIONS (1)
  - DEPRESSION [None]
